FAERS Safety Report 5657122-7 (Version None)
Quarter: 2008Q1

REPORT INFORMATION
  Report Type: 
  Country: None (occurrence: None)
  Receive Date: 20080310
  Receipt Date: 20080228
  Transmission Date: 20080703
  Serious: Yes (Hospitalization)
  Sender: FDA-Public Use
  Company Number: FR-JNJFOC-20080206567

PATIENT
  Age: 85 Year
  Sex: Male

DRUGS (9)
  1. OFLOCET [Suspect]
     Indication: DRUG USE FOR UNKNOWN INDICATION
     Route: 048
  2. PREVISCAN [Interacting]
     Indication: PROPHYLAXIS
     Route: 048
  3. ATENOLOL [Concomitant]
     Route: 048
  4. ELISOR [Concomitant]
     Route: 048
  5. COVERSYL [Concomitant]
     Route: 048
  6. MODOPAR [Concomitant]
     Route: 048
  7. NORDAZ [Concomitant]
     Route: 048
  8. PERMIXON [Concomitant]
     Route: 048
  9. EXELON [Concomitant]
     Route: 048

REACTIONS (2)
  - DRUG INTERACTION [None]
  - INTRA-ABDOMINAL HAEMATOMA [None]
